FAERS Safety Report 19376737 (Version 4)
Quarter: 2021Q4

REPORT INFORMATION
  Report Type: Report from Study
  Country: CA (occurrence: CA)
  Receive Date: 20210604
  Receipt Date: 20211025
  Transmission Date: 20220303
  Serious: Yes (Hospitalization)
  Sender: FDA-Public Use
  Company Number: CA-JNJFOC-20210553883

PATIENT
  Age: 56 Year
  Sex: Female

DRUGS (11)
  1. BOSENTAN [Suspect]
     Active Substance: BOSENTAN
     Indication: Pulmonary hypertension
     Route: 048
     Dates: start: 20150504
  2. BOSENTAN [Suspect]
     Active Substance: BOSENTAN
     Indication: Pulmonary hypertension
  3. ADEMPAS [Concomitant]
     Active Substance: RIOCIGUAT
  4. ACETAMINOPHEN\CODEINE PHOSPHATE [Concomitant]
     Active Substance: ACETAMINOPHEN\CODEINE PHOSPHATE
  5. AMITRIPTYLINE [Concomitant]
     Active Substance: AMITRIPTYLINE
  6. WARFARIN [Concomitant]
     Active Substance: WARFARIN
  7. RISPERIDONE [Concomitant]
     Active Substance: RISPERIDONE
  8. RANITIDINE [Concomitant]
     Active Substance: RANITIDINE
  9. SYNTHROID [Concomitant]
     Active Substance: LEVOTHYROXINE SODIUM
  10. LASIX [Concomitant]
     Active Substance: FUROSEMIDE
  11. SPIRONOLACTONE [Concomitant]
     Active Substance: SPIRONOLACTONE

REACTIONS (1)
  - Renal impairment [Recovered/Resolved]

NARRATIVE: CASE EVENT DATE: 20210519
